FAERS Safety Report 5153196-0 (Version None)
Quarter: 2006Q4

REPORT INFORMATION
  Report Type: 
  Country: None (occurrence: None)
  Receive Date: 20061117
  Receipt Date: 20061010
  Transmission Date: 20070319
  Serious: Yes (Hospitalization)
  Sender: FDA-Public Use
  Company Number: JP-ABBOTT-06P-087-0346459-00

PATIENT
  Sex: Male
  Weight: 104 kg

DRUGS (10)
  1. CEFZON [Suspect]
     Indication: INFECTION
     Route: 048
     Dates: start: 20060913, end: 20060917
  2. CEFDITOREN PIVOXIL [Suspect]
     Indication: INFECTION
     Route: 048
     Dates: start: 20060912
  3. CEFDITOREN PIVOXIL [Suspect]
     Indication: PYREXIA
  4. LOKIFLAN [Suspect]
     Indication: INFECTION
     Route: 048
     Dates: start: 20060913
  5. LETRAC [Suspect]
     Indication: INFECTION
     Route: 048
     Dates: start: 20060912
  6. LETRAC [Suspect]
     Indication: PYREXIA
  7. SERRAPEPTASE [Suspect]
     Indication: INFECTION
     Route: 048
     Dates: start: 20060912
  8. SERRAPEPTASE [Suspect]
     Indication: PYREXIA
  9. ACETAMINOPHEN [Suspect]
     Indication: INFECTION
     Route: 048
     Dates: start: 20060912
  10. ACETAMINOPHEN [Suspect]
     Indication: PYREXIA

REACTIONS (14)
  - BETA HAEMOLYTIC STREPTOCOCCAL INFECTION [None]
  - CONJUNCTIVAL HYPERAEMIA [None]
  - FACE OEDEMA [None]
  - FEELING HOT [None]
  - GENERALISED ERYTHEMA [None]
  - HEPATIC STEATOSIS [None]
  - LIVER DISORDER [None]
  - MUCOUS MEMBRANE DISORDER [None]
  - ORAL PAIN [None]
  - PRURITUS [None]
  - PYREXIA [None]
  - SUBCUTANEOUS ABSCESS [None]
  - TOXIC SKIN ERUPTION [None]
  - TRISMUS [None]
